FAERS Safety Report 9089072 (Version 2)
Quarter: 2014Q3

REPORT INFORMATION
  Report Type: Report from Study
  Country: MX (occurrence: MX)
  Receive Date: 20130201
  Receipt Date: 20140725
  Transmission Date: 20150326
  Serious: Yes (Death, Other)
  Sender: FDA-Public Use
  Company Number: PHHY2013MX008573

PATIENT
  Age: 72 Year
  Sex: Female

DRUGS (3)
  1. EXFORGE [Suspect]
     Active Substance: AMLODIPINE BESYLATE\VALSARTAN
     Dosage: 2 DF, DAILY
  2. EXFORGE [Suspect]
     Active Substance: AMLODIPINE BESYLATE\VALSARTAN
     Indication: HYPERTENSION
     Dosage: 1 DF, DAILY
     Route: 048
  3. SELOKEN [Concomitant]
     Active Substance: METOPROLOL
     Dosage: 1 DF, UNK

REACTIONS (2)
  - Death [Fatal]
  - Hepatic cirrhosis [Unknown]

NARRATIVE: CASE EVENT DATE: 20120201
